FAERS Safety Report 10231616 (Version 1)
Quarter: 2014Q2

REPORT INFORMATION
  Report Type: Spontaneous
  Country: CN (occurrence: CN)
  Receive Date: 20140611
  Receipt Date: 20140611
  Transmission Date: 20141212
  Serious: Yes (Hospitalization, Other)
  Sender: FDA-Public Use
  Company Number: CN-GILEAD-2014-0104751

PATIENT
  Age: 42 Year
  Sex: Male

DRUGS (1)
  1. HEPSERA [Suspect]
     Indication: CHRONIC HEPATITIS B
     Dosage: 10MG PER DAY
     Route: 048
     Dates: start: 20090517, end: 20110531

REACTIONS (13)
  - Gait disturbance [Recovering/Resolving]
  - Osteoporosis [Recovering/Resolving]
  - Thyroid neoplasm [Recovering/Resolving]
  - Hepatic cyst [Recovering/Resolving]
  - Fanconi syndrome acquired [Recovering/Resolving]
  - Hypophosphataemia [Recovering/Resolving]
  - Pain [Recovering/Resolving]
  - Back pain [Recovering/Resolving]
  - Muscular weakness [Recovering/Resolving]
  - Pain in extremity [Recovering/Resolving]
  - Muscle strain [Recovering/Resolving]
  - Arthralgia [Recovering/Resolving]
  - Asthenia [Recovering/Resolving]
